FAERS Safety Report 12679756 (Version 1)
Quarter: 2016Q3

REPORT INFORMATION
  Report Type: Spontaneous
  Country: US (occurrence: None)
  Receive Date: 20160823
  Receipt Date: 20160823
  Transmission Date: 20161109
  Serious: No
  Sender: FDA-Public Use
  Company Number: None

PATIENT
  Age: 57 Year
  Sex: Female
  Weight: 122.47 kg

DRUGS (11)
  1. TIKOSYN [Concomitant]
     Active Substance: DOFETILIDE
  2. MEDTRONIC EVERA S DR DEFIBRILLATOR [Concomitant]
  3. DIGOXIN. [Concomitant]
     Active Substance: DIGOXIN
  4. FUROSEMIDE. [Concomitant]
     Active Substance: FUROSEMIDE
  5. MAG OXIDE [Concomitant]
     Active Substance: MAGNESIUM OXIDE
  6. DILTIAZEM. [Concomitant]
     Active Substance: DILTIAZEM
  7. WARFARIN [Concomitant]
     Active Substance: WARFARIN
  8. KLOR-CON M20 ER [Concomitant]
  9. SPIRONOLACTONE. [Concomitant]
     Active Substance: SPIRONOLACTONE
  10. METOPROLOL ER [Concomitant]
     Active Substance: METOPROLOL SUCCINATE
  11. METOPROLOL SUCCINATE ER, 25 MG [Suspect]
     Active Substance: METOPROLOL SUCCINATE
     Indication: HYPERTROPHIC CARDIOMYOPATHY
     Route: 048
     Dates: start: 20160815, end: 20160819

REACTIONS (5)
  - Product substitution issue [None]
  - Dyspnoea [None]
  - Atrial fibrillation [None]
  - Arrhythmia [None]
  - Supraventricular tachycardia [None]

NARRATIVE: CASE EVENT DATE: 20160817
